FAERS Safety Report 19178347 (Version 5)
Quarter: 2021Q3

REPORT INFORMATION
  Report Type: Other
  Country: GB (occurrence: GB)
  Receive Date: 20210426
  Receipt Date: 20210819
  Transmission Date: 20211014
  Serious: Yes (Other)
  Sender: FDA-Public Use
  Company Number: GB-GLENMARK PHARMACEUTICALS-2021GMK053623

PATIENT

DRUGS (18)
  1. DUODOPA [Suspect]
     Active Substance: CARBIDOPA\LEVODOPA
     Dosage: MORNING DOSE: 4.7ML, CONTINUOUS RATE: 1.0ML, EXTRA DOSE: 0.5ML
     Route: 050
     Dates: start: 2021, end: 2021
  2. ROPINIROLE HYDROCHLORIDE. [Suspect]
     Active Substance: ROPINIROLE HYDROCHLORIDE
     Dosage: 4 MILLIGRAM, 6 TIMES A DAY
     Route: 048
  3. DUODOPA [Suspect]
     Active Substance: CARBIDOPA\LEVODOPA
     Dosage: 20MG/5MG; MORNING DOSE 1.8+3ML; CONTINUOUS RATE 0.8ML; EXTRA DOSE 0.5ML, 16HRS
     Route: 050
     Dates: start: 202103, end: 2021
  4. DUODOPA [Suspect]
     Active Substance: CARBIDOPA\LEVODOPA
     Dosage: 20MG/5MG; MORNING DOSE 1.8+3ML; CONTINUOUS RATE 0.8ML; EXTRA DOSE 0.5ML, 16HRS
     Route: 050
     Dates: start: 202107
  5. DUODOPA [Suspect]
     Active Substance: CARBIDOPA\LEVODOPA
     Dosage: MORNING DOSE: 4.8ML, CONTINUOUS RATE: 0.8ML, EXTRA DOSE: 0.5ML
     Route: 050
     Dates: start: 202103, end: 2021
  6. DUODOPA [Suspect]
     Active Substance: CARBIDOPA\LEVODOPA
     Dosage: MORNING DOSE: 4.7ML, CONTINUOUS RATE: 1.8ML, EXTRA
     Route: 050
     Dates: start: 2021, end: 2021
  7. DUODOPA [Suspect]
     Active Substance: CARBIDOPA\LEVODOPA
     Dosage: 20MG/5MG; MORNING DOSE 1.8+3ML; CONTINUOUS RATE 0.8ML; EXTRA DOSE 0.5ML, 16HRS
     Route: 050
     Dates: start: 202103, end: 2021
  8. DUODOPA [Suspect]
     Active Substance: CARBIDOPA\LEVODOPA
     Dosage: MORNING DOSE: 4.7ML, CONTINUOUS RATE: 1.2ML, EXTRA
     Route: 050
     Dates: start: 20210723
  9. RASAGILINE. [Concomitant]
     Active Substance: RASAGILINE
     Indication: PARKINSON^S DISEASE
     Dosage: 1 MILLIGRAM, OD
     Route: 048
  10. DUODOPA [Suspect]
     Active Substance: CARBIDOPA\LEVODOPA
     Dosage: MORNING DOSE: 4.8ML, CONTINUOUS RATE: 0.8ML, EXTRA DOSE: 0.5ML
     Route: 050
     Dates: start: 202103, end: 2021
  11. MADOPAR [Concomitant]
     Active Substance: BENSERAZIDE HYDROCHLORIDE\LEVODOPA
     Dosage: UNK, 3 TIMES OVERNIGHT, 50/12.5MG
     Route: 048
  12. ROPINIROLE HYDROCHLORIDE. [Suspect]
     Active Substance: ROPINIROLE HYDROCHLORIDE
     Indication: PARKINSON^S DISEASE
     Dosage: 4 MILLIGRAM, 5 TIMES A DAY
     Route: 048
  13. ROPINIROLE HYDROCHLORIDE. [Suspect]
     Active Substance: ROPINIROLE HYDROCHLORIDE
     Dosage: 4 MILLIGRAM, UNK
     Route: 048
  14. DUODOPA [Suspect]
     Active Substance: CARBIDOPA\LEVODOPA
     Indication: PARKINSON^S DISEASE
     Dosage: 20MG/5MG; MORNING DOSE 1.8+3ML; CONTINUOUS RATE 0.8ML; EXTRA DOSE 0.5ML, 16HRS
     Route: 050
     Dates: start: 20210322, end: 202103
  15. DUODOPA [Suspect]
     Active Substance: CARBIDOPA\LEVODOPA
     Dosage: MORNING DOSE: 4.7ML, CONTINUOUS RATE: 1.2ML, EXTRA
     Route: 050
     Dates: start: 2021, end: 20210723
  16. DUODOPA [Suspect]
     Active Substance: CARBIDOPA\LEVODOPA
     Dosage: MORNING DOSE: 4.7ML, CONTINUOUS RATE: 1.0ML, EXTRA DOSE: 0.5ML
     Route: 050
     Dates: start: 2021, end: 2021
  17. DUODOPA [Suspect]
     Active Substance: CARBIDOPA\LEVODOPA
     Dosage: MORNING DOSE: 4.7ML, CONTINUOUS RATE: 1.8ML, EXTRA
     Route: 050
     Dates: start: 2021, end: 2021
  18. MADOPAR [Concomitant]
     Active Substance: BENSERAZIDE HYDROCHLORIDE\LEVODOPA
     Indication: PARKINSON^S DISEASE
     Dosage: UNK, BD OVERNIGHT
     Route: 048

REACTIONS (16)
  - Mobility decreased [Unknown]
  - Freezing phenomenon [Not Recovered/Not Resolved]
  - Speech disorder [Unknown]
  - Rash [Recovered/Resolved]
  - Paraesthesia [Not Recovered/Not Resolved]
  - Lethargy [Unknown]
  - Hyperkinesia [Not Recovered/Not Resolved]
  - Muscle rigidity [Not Recovered/Not Resolved]
  - Dystonia [Not Recovered/Not Resolved]
  - Groin pain [Not Recovered/Not Resolved]
  - Tremor [Recovered/Resolved]
  - Pruritus [Recovered/Resolved]
  - On and off phenomenon [Not Recovered/Not Resolved]
  - Drug ineffective [Unknown]
  - Abdominal pain upper [Not Recovered/Not Resolved]
  - Dyskinesia [Not Recovered/Not Resolved]

NARRATIVE: CASE EVENT DATE: 2021
